FAERS Safety Report 9383432 (Version 1)
Quarter: 2013Q3

REPORT INFORMATION
  Report Type: Report from Study
  Country: BE (occurrence: BE)
  Receive Date: 20130704
  Receipt Date: 20130704
  Transmission Date: 20140515
  Serious: Yes (Other)
  Sender: FDA-Public Use
  Company Number: BE-ROCHE-1020483

PATIENT
  Age: 54 Year
  Sex: Female
  Weight: 91 kg

DRUGS (20)
  1. PEG-INTERFERON ALFA 2A [Suspect]
     Indication: CHRONIC HEPATITIS C
     Route: 058
     Dates: start: 20110830
  2. PEG-INTERFERON ALFA 2A [Suspect]
     Route: 058
     Dates: start: 20121030
  3. RIBAVIRIN [Suspect]
     Indication: CHRONIC HEPATITIS C
     Route: 048
     Dates: start: 20110830
  4. RIBAVIRIN [Suspect]
     Route: 048
     Dates: start: 20121030
  5. SIFROL [Concomitant]
     Indication: RESTLESS LEGS SYNDROME
     Route: 048
  6. PANTOMED [Concomitant]
     Indication: GASTRITIS
     Route: 048
     Dates: end: 20111025
  7. RUPATADINE FUMARATE [Concomitant]
     Indication: HYPERSENSITIVITY
     Route: 048
     Dates: start: 201102
  8. LYSANXIA [Concomitant]
     Indication: ANXIETY
     Route: 048
     Dates: start: 20110810
  9. ESCITALOPRAM [Concomitant]
     Indication: DEPRESSION
     Route: 048
     Dates: start: 20110815
  10. D-CURE [Concomitant]
     Indication: OSTEOPOROSIS
     Route: 048
  11. DAFALGAN [Concomitant]
     Indication: INFLUENZA LIKE ILLNESS
     Route: 048
     Dates: start: 20110830, end: 20111025
  12. IBUPROFEN [Concomitant]
     Indication: INFLUENZA LIKE ILLNESS
     Route: 048
     Dates: start: 20111025
  13. TRADONAL [Concomitant]
     Indication: AXONAL NEUROPATHY
     Route: 048
     Dates: end: 20111025
  14. PANADOL [Concomitant]
     Indication: AXONAL NEUROPATHY
     Route: 048
  15. AFEBRYL [Concomitant]
     Indication: INFLUENZA LIKE ILLNESS
     Route: 065
     Dates: start: 20121030
  16. LORAMET [Concomitant]
     Indication: INSOMNIA
     Route: 048
     Dates: start: 20121106
  17. PANADOL [Concomitant]
     Indication: AXONAL NEUROPATHY
     Route: 048
  18. AFEBRYL [Concomitant]
     Indication: INFLUENZA LIKE ILLNESS
     Route: 048
     Dates: start: 20121030
  19. LORAMET [Concomitant]
     Indication: INSOMNIA
     Route: 065
     Dates: start: 20121106
  20. PLACEBO [Suspect]
     Indication: CHRONIC HEPATITIS C
     Route: 048
     Dates: start: 20110830, end: 20120213

REACTIONS (2)
  - Skin lesion [Recovered/Resolved]
  - Pruritus [Recovered/Resolved]
